FAERS Safety Report 9346419 (Version 1)
Quarter: 2013Q2

REPORT INFORMATION
  Report Type: Report from Study
  Country: US (occurrence: US)
  Receive Date: 20130613
  Receipt Date: 20130613
  Transmission Date: 20140414
  Serious: Yes (Hospitalization)
  Sender: FDA-Public Use
  Company Number: US-ROCHE-1232582

PATIENT
  Sex: Male

DRUGS (16)
  1. XOLAIR [Suspect]
     Indication: ASTHMA
     Route: 058
  2. ALBUTEROL [Concomitant]
     Indication: ASTHMA
     Route: 065
  3. LEVOCETIRIZINE HCL [Concomitant]
     Route: 065
  4. OLOPATADINE [Concomitant]
  5. ADVAIR [Concomitant]
     Route: 055
  6. FLUOCINONIDE [Concomitant]
     Route: 061
  7. TRIAMCINOLONE [Concomitant]
     Route: 061
  8. HYDROCORTISONE [Concomitant]
     Route: 061
  9. FLUOROMETHOLONE [Concomitant]
     Route: 047
  10. TACROLIMUS [Concomitant]
     Route: 061
  11. MUPIROCIN [Concomitant]
     Route: 061
  12. ATARAX (UNITED STATES) [Concomitant]
     Route: 048
  13. LANSOPRAZOLE [Concomitant]
     Route: 048
  14. CLOBETASOL PROPIONATE [Concomitant]
     Route: 061
  15. FLONASE [Concomitant]
     Route: 045
  16. EPIPEN [Concomitant]
     Route: 058

REACTIONS (20)
  - Asthma [Unknown]
  - Wheezing [Unknown]
  - Cough [Unknown]
  - Lung hyperinflation [Unknown]
  - Diaphragmatic disorder [Unknown]
  - Nasal congestion [Unknown]
  - Mouth breathing [Unknown]
  - Snoring [Unknown]
  - Sneezing [Unknown]
  - Breath odour [Unknown]
  - Sinusitis [Unknown]
  - Dermatitis atopic [Unknown]
  - Nasal turbinate hypertrophy [Unknown]
  - Generalised erythema [Unknown]
  - Skin exfoliation [Unknown]
  - Headache [Unknown]
  - Palpitations [Unknown]
  - Anxiety [Unknown]
  - Myalgia [Unknown]
  - Muscle spasms [Unknown]
